FAERS Safety Report 10012523 (Version 2)
Quarter: 2014Q2

REPORT INFORMATION
  Report Type: Report from Study
  Country: JP (occurrence: JP)
  Receive Date: 20140314
  Receipt Date: 20140408
  Transmission Date: 20141212
  Serious: Yes (Other)
  Sender: FDA-Public Use
  Company Number: JP-BRISTOL-MYERS SQUIBB COMPANY-20428694

PATIENT
  Age: 68 Year
  Sex: Female
  Weight: 41 kg

DRUGS (4)
  1. ABILIFY TABS [Suspect]
     Indication: BIPOLAR DISORDER
     Route: 048
     Dates: start: 20130803, end: 20130921
  2. LIMAS [Concomitant]
     Dosage: TABS
     Dates: start: 20130513, end: 20130921
  3. WYPAX [Concomitant]
     Dosage: TABS
     Dates: start: 20130513, end: 20130921
  4. FLUNITRAZEPAM [Concomitant]
     Dosage: TABS
     Dates: start: 20130513, end: 20130921

REACTIONS (2)
  - Diverticulitis [Unknown]
  - Pneumonia [Unknown]
